FAERS Safety Report 10709588 (Version 1)
Quarter: 2015Q1

REPORT INFORMATION
  Report Type: Spontaneous
  Country: US (occurrence: None)
  Receive Date: 20150113
  Receipt Date: 20150113
  Transmission Date: 20150721
  Serious: Yes (Disabling)
  Sender: FDA-Public Use
  Company Number: None

PATIENT
  Age: 66 Year
  Sex: Female
  Weight: 51.26 kg

DRUGS (1)
  1. LOSARTAN [Suspect]
     Active Substance: LOSARTAN
     Indication: HYPERTENSION
     Dosage: 1 PILL, ONCE DAILY
     Route: 048
     Dates: start: 20150107, end: 20150109

REACTIONS (2)
  - Activities of daily living impaired [None]
  - Anxiety [None]

NARRATIVE: CASE EVENT DATE: 20150108
